FAERS Safety Report 19685436 (Version 1)
Quarter: 2021Q3

REPORT INFORMATION
  Report Type: Spontaneous
  Country: US (occurrence: US)
  Receive Date: 20210811
  Receipt Date: 20210811
  Transmission Date: 20211014
  Serious: Yes (Other)
  Sender: FDA-Public Use
  Company Number: None

PATIENT
  Age: 32 Year
  Sex: Female

DRUGS (1)
  1. VENOFER [Suspect]
     Active Substance: IRON SUCROSE
     Dosage: ?          OTHER FREQUENCY:5 DOSES OVER 2 WKS;?
     Route: 042
     Dates: start: 20210716

REACTIONS (1)
  - Headache [None]

NARRATIVE: CASE EVENT DATE: 20210716
